FAERS Safety Report 6898147-3 (Version None)
Quarter: 2010Q3

REPORT INFORMATION
  Report Type: 
  Country: None (occurrence: None)
  Receive Date: 20100802
  Receipt Date: 20070918
  Transmission Date: 20110219
  Serious: No
  Sender: FDA-Public Use
  Company Number: US-PFIZER INC-2007074709

PATIENT
  Sex: Female
  Weight: 135 kg

DRUGS (14)
  1. LYRICA [Suspect]
     Indication: NEURALGIA
     Dates: start: 20070901
  2. LYRICA [Suspect]
     Indication: FIBROMYALGIA
  3. DARVOCET [Concomitant]
     Indication: MYALGIA
  4. FLEXERIL [Concomitant]
     Indication: MYALGIA
  5. ACETYLSALICYLIC ACID SRT [Concomitant]
  6. LISINOPRIL [Concomitant]
  7. LIPITOR [Concomitant]
  8. METFORMIN HCL [Concomitant]
  9. NASACORT [Concomitant]
     Indication: HYPERSENSITIVITY
  10. ATROVENT [Concomitant]
  11. ALBUTEROL [Concomitant]
  12. COUGH AND COLD PREPARATIONS [Concomitant]
     Indication: THROAT IRRITATION
  13. MUCINEX [Concomitant]
     Indication: UPPER RESPIRATORY TRACT CONGESTION
  14. TYLENOL [Concomitant]

REACTIONS (1)
  - FATIGUE [None]
